FAERS Safety Report 6534464-4 (Version None)
Quarter: 2009Q4

REPORT INFORMATION
  Report Type: 
  Country: None (occurrence: None)
  Receive Date: 20091228
  Receipt Date: 20091026
  Transmission Date: 20100525
  Serious: Yes (Hospitalization)
  Sender: FDA-Public Use
  Company Number: US-003644

PATIENT
  Age: 64 Year
  Sex: Male
  Weight: 70 kg

DRUGS (1)
  1. MULTIHANCE [Suspect]
     Indication: MYOCARDIAL INFARCTION
     Dosage: 25ML ONCE INTRAVENOUS (NOT SPECIFIED)
     Route: 042
     Dates: start: 20090624, end: 20090624

REACTIONS (1)
  - ANAPHYLACTOID REACTION [None]
